FAERS Safety Report 21945857 (Version 1)
Quarter: 2023Q1

REPORT INFORMATION
  Report Type: Spontaneous
  Country: US (occurrence: US)
  Receive Date: 20230202
  Receipt Date: 20230202
  Transmission Date: 20230417
  Serious: No
  Sender: FDA-Public Use
  Company Number: US-SA-SAC20230201000046

PATIENT
  Sex: Male
  Weight: 112.03 kg

DRUGS (1)
  1. AUBAGIO [Suspect]
     Active Substance: TERIFLUNOMIDE
     Dosage: DOSE: 14MG FREQUENCY: 1 TABLET DAILY
     Route: 048
     Dates: start: 20221004

REACTIONS (1)
  - Weight decreased [Recovered/Resolved]
